FAERS Safety Report 7725541-0 (Version None)
Quarter: 2011Q3

REPORT INFORMATION
  Report Type: 
  Country: None (occurrence: None)
  Receive Date: 20110830
  Receipt Date: 20110816
  Transmission Date: 20111222
  Serious: Yes (Other)
  Sender: FDA-Public Use
  Company Number: 2011BR0224

PATIENT
  Age: 1 Year
  Sex: Male
  Weight: 14 kg

DRUGS (1)
  1. NITISINONE (NITISINONE) [Suspect]
     Indication: TYROSINAEMIA
     Dosage: 10 MG/DAY ALTENATING WITH 15 MG/DAY (1 IN 1 D)
     Dates: start: 20100814

REACTIONS (1)
  - LENTICULAR OPACITIES [None]
